FAERS Safety Report 7818969-1 (Version None)
Quarter: 2011Q4

REPORT INFORMATION
  Report Type: 
  Country: None (occurrence: None)
  Receive Date: 20111017
  Receipt Date: 20111017
  Transmission Date: 20120403
  Serious: No
  Sender: FDA-Public Use
  Company Number: None

PATIENT
  Age: 81 Year
  Sex: Male

DRUGS (6)
  1. ALLOPURINOL [Concomitant]
  2. REVLIMID [Suspect]
     Indication: WALDENSTROM'S MACROGLOBULINAEMIA
     Dosage: 15MG QDX21D/28D ORALLY
     Route: 048
     Dates: start: 20080601, end: 20110901
  3. REVLIMID [Suspect]
     Indication: WALDENSTROM'S MACROGLOBULINAEMIA
     Dosage: 15MG QDX21D/28D ORALLY
     Route: 048
     Dates: start: 20061001, end: 20090601
  4. FLOMAX [Concomitant]
  5. CARVEDILOL [Concomitant]
  6. TAMOLIDINE [Concomitant]

REACTIONS (1)
  - NEUTROPENIA [None]
